FAERS Safety Report 7736130-6 (Version None)
Quarter: 2011Q3

REPORT INFORMATION
  Report Type: 
  Country: None (occurrence: None)
  Receive Date: 20110908
  Receipt Date: 20110829
  Transmission Date: 20111222
  Serious: Yes (Other)
  Sender: FDA-Public Use
  Company Number: CH-JNJFOC-20110812791

PATIENT
  Sex: Female

DRUGS (3)
  1. SOLIAN [Concomitant]
     Route: 065
     Dates: end: 20110101
  2. PALIPERIDONE [Suspect]
     Indication: PRODUCT USED FOR UNKNOWN INDICATION
     Route: 030
     Dates: start: 20110601
  3. TRAZODONE HCL [Concomitant]
     Route: 065
     Dates: start: 20110101

REACTIONS (5)
  - GALACTORRHOEA [None]
  - FATIGUE [None]
  - HYPOTHALAMO-PITUITARY DISORDER [None]
  - HYPOTHYROIDISM [None]
  - BLOOD PROLACTIN INCREASED [None]
